FAERS Safety Report 5533303-8 (Version None)
Quarter: 2007Q4

REPORT INFORMATION
  Report Type: 
  Country: None (occurrence: None)
  Receive Date: 20071204
  Receipt Date: 20071123
  Transmission Date: 20080405
  Serious: Yes (Other)
  Sender: FDA-Public Use
  Company Number: FR-JNJFOC-20071109930

PATIENT

DRUGS (2)
  1. REMICADE [Suspect]
     Dosage: 9 TH INFUSION
     Route: 042
  2. REMICADE [Suspect]
     Indication: CROHN'S DISEASE
     Dosage: 8 INFUSIONS
     Route: 042

REACTIONS (2)
  - INFUSION RELATED REACTION [None]
  - URTICARIA [None]
